FAERS Safety Report 11473839 (Version 1)
Quarter: 2015Q3

REPORT INFORMATION
  Report Type: Spontaneous
  Country: US (occurrence: None)
  Receive Date: 20150902
  Receipt Date: 20150902
  Transmission Date: 20151125
  Serious: Yes (Hospitalization)
  Sender: FDA-Public Use
  Company Number: A-NJ2014-110239

PATIENT
  Age: 50 Year
  Sex: Female

DRUGS (4)
  1. COUMDADIN (WARFARIN SODIUM) [Concomitant]
  2. REVATIO (SILDENAFIL CITRATE) [Concomitant]
  3. LETAIRIS [Concomitant]
     Active Substance: AMBRISENTAN
  4. VELETRI [Suspect]
     Active Substance: EPOPROSTENOL
     Indication: PULMONARY HYPERTENSION
     Dosage: 32 NG/KG PER MIN
     Route: 042
     Dates: start: 20120503

REACTIONS (5)
  - Device related infection [None]
  - Catheter site warmth [None]
  - Device occlusion [None]
  - Catheter site erythema [None]
  - Catheter placement [None]
